FAERS Safety Report 8649057 (Version 3)
Quarter: 2012Q4

REPORT INFORMATION
  Report Type: 
  Country: NL (occurrence: NL)
  Receive Date: 20120704
  Receipt Date: 20120924
  Transmission Date: 20130627
  Serious: Yes (Hospitalization)
  Sender: FDA-Public Use
  Company Number: PHHY2012NL056864

PATIENT
  Sex: Female
  Weight: 74 kg

DRUGS (6)
  1. ZOMETA [Suspect]
     Indication: BREAST CANCER METASTATIC
     Dosage: 4 mg/100ml, QMO
     Route: 042
     Dates: start: 20101117
  2. ZOMETA [Suspect]
     Dosage: 4 mg/100ml, QMO
     Route: 042
     Dates: start: 20120518
  3. ZOMETA [Suspect]
     Dosage: 4 mg/100ml, QMO
     Route: 042
     Dates: start: 20120703
  4. ZOMETA [Suspect]
     Dosage: 4 mg/100ml, QMO
     Route: 042
     Dates: start: 20120731
  5. ZOMETA [Suspect]
     Dosage: 4 mg/100ml, QMO
     Route: 042
     Dates: start: 20120828
  6. TAMOXIFEN [Suspect]
     Dates: start: 201106

REACTIONS (2)
  - Uterine cyst [Not Recovered/Not Resolved]
  - Endometrial hypertrophy [Unknown]
